FAERS Safety Report 24360070 (Version 1)
Quarter: 2024Q3

REPORT INFORMATION
  Report Type: Report from Study
  Country: US (occurrence: US)
  Receive Date: 20240925
  Receipt Date: 20240925
  Transmission Date: 20241017
  Serious: No
  Sender: ROCHE
  Company Number: US-ROCHE-10000087681

PATIENT
  Age: 47 Year
  Sex: Male
  Weight: 102.05 kg

DRUGS (9)
  1. OCREVUS [Suspect]
     Active Substance: OCRELIZUMAB
     Indication: Relapsing-remitting multiple sclerosis
     Dosage: PATIENT HAS HAD 12 INFUSIONS OF OCREVUS SO FAR. HE WAS ON IT FOR QUITE A WHILE.
     Route: 042
  2. BACLOFEN [Suspect]
     Active Substance: BACLOFEN
     Indication: Muscle spasticity
     Dosage: TAKES 1 TABLET BEFORE BED STARTED ABOUT 1 MONTH AGO.
     Route: 048
  3. BACLOFEN [Suspect]
     Active Substance: BACLOFEN
     Dosage: STARTED ABOUT 1 YEAR AGO. STOPPED AFTER 5 OR 6 MONTHS.
     Route: 048
  4. LORATADINE [Concomitant]
     Active Substance: LORATADINE
     Indication: Seasonal allergy
     Dosage: STARTED YEARS AGO.
     Route: 048
  5. FISH OIL [Concomitant]
     Active Substance: FISH OIL
     Dosage: STARTED YEARS AGO.
     Route: 048
  6. BISACODYL [Concomitant]
     Active Substance: BISACODYL
     Indication: Constipation
     Dosage: STARTED 2 TO 3 YEARS AGO.
     Route: 054
  7. CANNABIS SATIVA SUBSP. INDICA TOP [Concomitant]
     Active Substance: CANNABIS SATIVA SUBSP. INDICA TOP
     Indication: Muscle spasticity
     Dosage: THIS PILL IS GREEN AND IS IN THE MIDDLE RANGE OF DOSAGE.  STARTED 3 YEARS AGO. TAKES ONLY AS NEEDED
     Route: 048
  8. CANNABIS SATIVA SUBSP. INDICA TOP [Concomitant]
     Active Substance: CANNABIS SATIVA SUBSP. INDICA TOP
     Indication: Anxiety
     Dosage: PILL IS YELLOW AND IN THE MIDDLE RANGE OF DOSAGE. STARTED ABOUT 3 YEARS AGO. TAKES ONLY AS NEEDED
  9. VITAMIN D3 [Concomitant]
     Active Substance: CHOLECALCIFEROL
     Dosage: STARTED YEARS AGO.
     Route: 048

REACTIONS (4)
  - Cholecystitis [Recovered/Resolved]
  - Cholelithiasis [Recovered/Resolved]
  - Fatigue [Recovered/Resolved]
  - COVID-19 [Unknown]

NARRATIVE: CASE EVENT DATE: 20221201
